FAERS Safety Report 17522723 (Version 1)
Quarter: 2020Q1

REPORT INFORMATION
  Report Type: Spontaneous
  Country: US (occurrence: US)
  Receive Date: 20200310
  Receipt Date: 20200310
  Transmission Date: 20200409
  Serious: Yes (Life-Threatening, Hospitalization)
  Sender: FDA-Public Use
  Company Number: US-MYLANLABS-2020M1026646

PATIENT
  Age: 74 Year
  Sex: Female

DRUGS (3)
  1. PROPAFENONE. [Interacting]
     Active Substance: PROPAFENONE
     Indication: ATRIAL FIBRILLATION
     Route: 065
  2. APIXABAN [Concomitant]
     Active Substance: APIXABAN
     Route: 065
  3. AMIODARONE [Suspect]
     Active Substance: AMIODARONE
     Indication: ATRIAL FIBRILLATION
     Route: 065

REACTIONS (5)
  - Drug interaction [Recovered/Resolved]
  - Bradycardia [Recovered/Resolved]
  - Tremor [Unknown]
  - Fall [Recovered/Resolved]
  - Unresponsive to stimuli [Recovered/Resolved]
